FAERS Safety Report 19592134 (Version 1)
Quarter: 2021Q3

REPORT INFORMATION
  Report Type: Spontaneous
  Country: US (occurrence: US)
  Receive Date: 20210721
  Receipt Date: 20210721
  Transmission Date: 20211014
  Serious: No
  Sender: FDA-Public Use
  Company Number: None

PATIENT
  Age: 78 Year
  Sex: Female

DRUGS (1)
  1. IMATINIB MES TAB 400MG [Suspect]
     Active Substance: IMATINIB MESYLATE
     Route: 048
     Dates: start: 2006

REACTIONS (5)
  - Alopecia [None]
  - Heart rate increased [None]
  - Nausea [None]
  - Vomiting [None]
  - Heart rate irregular [None]

NARRATIVE: CASE EVENT DATE: 20210721
